FAERS Safety Report 19040569 (Version 3)
Quarter: 2022Q1

REPORT INFORMATION
  Report Type: Spontaneous
  Country: US (occurrence: US)
  Receive Date: 20210323
  Receipt Date: 20220328
  Transmission Date: 20220423
  Serious: Yes (Other)
  Sender: FDA-Public Use
  Company Number: US-LUPIN PHARMACEUTICALS INC.-2021-03556

PATIENT
  Age: 18 Year
  Sex: Female

DRUGS (27)
  1. HYDROXYCHLOROQUINE [Suspect]
     Active Substance: HYDROXYCHLOROQUINE
     Indication: Antiphospholipid syndrome
     Dosage: 200 MILLIGRAM, QD, ONGOING WITH ECULIZUMAB
     Route: 065
     Dates: start: 201803
  2. HYDROXYCHLOROQUINE [Suspect]
     Active Substance: HYDROXYCHLOROQUINE
     Dosage: 200 MILLIGRAM, QD
     Route: 065
     Dates: start: 201804
  3. HYDROXYCHLOROQUINE [Suspect]
     Active Substance: HYDROXYCHLOROQUINE
     Dosage: 200 MILLIGRAM, QD
     Route: 065
     Dates: start: 201904
  4. ENOXAPARIN [Suspect]
     Active Substance: ENOXAPARIN
     Indication: Antiphospholipid syndrome
     Dosage: 1 MILLIGRAM/KILOGRAM, BID
     Route: 065
     Dates: start: 201607
  5. ENOXAPARIN [Suspect]
     Active Substance: ENOXAPARIN
     Dosage: 1 MILLIGRAM/KILOGRAM, BID
     Route: 065
     Dates: start: 201804
  6. CLOPIDOGREL [Suspect]
     Active Substance: CLOPIDOGREL BISULFATE
     Indication: Antiphospholipid syndrome
     Dosage: 75 MILLIGRAM, QD, ONGOING WITH ECULIZUMAB
     Route: 065
     Dates: start: 201803
  7. CLOPIDOGREL [Suspect]
     Active Substance: CLOPIDOGREL BISULFATE
     Dosage: 75 MILLIGRAM, QD, ONGOING WITH ECULIZUMAB
     Route: 065
     Dates: start: 201804
  8. CLOPIDOGREL [Suspect]
     Active Substance: CLOPIDOGREL BISULFATE
     Dosage: 75 MILLIGRAM, QD, ONGOING WITH ECULIZUMAB
     Route: 065
     Dates: start: 201904
  9. FONDAPARINUX [Suspect]
     Active Substance: FONDAPARINUX
     Indication: Antiphospholipid syndrome
     Dosage: 10 MILLIGRAM, QD, ONGOING WITH ECULIZUMAB
     Route: 065
     Dates: start: 201804
  10. FONDAPARINUX [Suspect]
     Active Substance: FONDAPARINUX
     Dosage: 10 MILLIGRAM, QD, ONGOING WITH ECULIZUMAB
     Route: 065
     Dates: start: 201904
  11. APIXABAN [Suspect]
     Active Substance: APIXABAN
     Indication: Antiphospholipid syndrome
     Dosage: 10 MILLIGRAM, BID, FOR 7 DAYS
     Route: 065
     Dates: start: 201612
  12. APIXABAN [Suspect]
     Active Substance: APIXABAN
     Dosage: 5 MILLIGRAM, BID
     Route: 065
     Dates: start: 201612
  13. APIXABAN [Suspect]
     Active Substance: APIXABAN
     Dosage: 10 MILLIGRAM, BID, FOR 7 DAYS
     Route: 065
     Dates: start: 201802
  14. APIXABAN [Suspect]
     Active Substance: APIXABAN
     Dosage: 5 MILLIGRAM, BID
     Route: 065
     Dates: start: 201802
  15. APIXABAN [Suspect]
     Active Substance: APIXABAN
     Dosage: 10 MILLIGRAM, BID, FOR 7 DAYS
     Route: 065
     Dates: start: 201803
  16. APIXABAN [Suspect]
     Active Substance: APIXABAN
     Dosage: 5 MILLIGRAM, BID
     Route: 065
     Dates: start: 201803
  17. RIVAROXABAN [Suspect]
     Active Substance: RIVAROXABAN
     Indication: Antiphospholipid syndrome
     Dosage: UNK
     Route: 065
     Dates: start: 2016
  18. ASPIRIN [Suspect]
     Active Substance: ASPIRIN
     Indication: Antiphospholipid syndrome
     Dosage: 81 MILLIGRAM, QD
     Route: 065
     Dates: start: 201611
  19. ASPIRIN [Suspect]
     Active Substance: ASPIRIN
     Dosage: 81 MILLIGRAM, QD
     Route: 065
     Dates: start: 201612
  20. ASPIRIN [Suspect]
     Active Substance: ASPIRIN
     Dosage: 81 MILLIGRAM, QD
     Route: 065
     Dates: start: 201802
  21. ASPIRIN [Suspect]
     Active Substance: ASPIRIN
     Dosage: 81 MILLIGRAM, QD
     Route: 065
     Dates: start: 201803
  22. ASPIRIN [Suspect]
     Active Substance: ASPIRIN
     Dosage: 81 MILLIGRAM, QD
     Route: 065
     Dates: start: 201804
  23. ASPIRIN [Suspect]
     Active Substance: ASPIRIN
     Dosage: 81 MILLIGRAM, QD
     Route: 065
     Dates: start: 201904
  24. WARFARIN [Suspect]
     Active Substance: WARFARIN
     Indication: Antiphospholipid syndrome
     Dosage: UNK
     Route: 065
     Dates: start: 201607
  25. RITUXIMAB [Suspect]
     Active Substance: RITUXIMAB
     Indication: Antiphospholipid syndrome
     Dosage: 889 MILLIGRAM (FOUR WEEKLY DOSES OF RITUXIMAB 889MG = 375MG/M2TIMES2.37M2)
     Route: 065
     Dates: start: 201612
  26. PREDNISONE [Suspect]
     Active Substance: PREDNISONE
     Indication: Antiphospholipid syndrome
     Dosage: 60 MILLIGRAM, QD
     Route: 065
     Dates: start: 201904
  27. METHYLPREDNISOLONE [Concomitant]
     Active Substance: METHYLPREDNISOLONE
     Indication: Hepatic infarction
     Dosage: 1000 MILLIGRAM
     Route: 042
     Dates: start: 201904

REACTIONS (1)
  - Treatment failure [Unknown]
